FAERS Safety Report 14125223 (Version 1)
Quarter: 2017Q4

REPORT INFORMATION
  Report Type: Spontaneous
  Country: ES (occurrence: ES)
  Receive Date: 20171025
  Receipt Date: 20171025
  Transmission Date: 20180321
  Serious: Yes (Other)
  Sender: FDA-Public Use
  Company Number: ES-BRISTOL-MYERS SQUIBB COMPANY-BMS-2017-093102

PATIENT
  Age: 4 Year
  Sex: Male

DRUGS (1)
  1. TRIAMCINOLONE ACETONIDE. [Suspect]
     Active Substance: TRIAMCINOLONE ACETONIDE
     Indication: PRODUCT USED FOR UNKNOWN INDICATION
     Dosage: SUBTENON
     Route: 065

REACTIONS (4)
  - Retinal artery embolism [Recovering/Resolving]
  - Product use issue [Unknown]
  - Drug administered to patient of inappropriate age [Unknown]
  - Eyelid haematoma [Recovering/Resolving]
